FAERS Safety Report 4881657-8 (Version None)
Quarter: 2006Q1

REPORT INFORMATION
  Report Type: 
  Country: None (occurrence: None)
  Receive Date: 20060112
  Receipt Date: 20060104
  Transmission Date: 20060701
  Serious: Yes (Other)
  Sender: FDA-Public Use
  Company Number: 2006003682

PATIENT
  Sex: Female

DRUGS (2)
  1. ZYRTEC [Suspect]
     Indication: ILL-DEFINED DISORDER
  2. LIPITOR [Concomitant]

REACTIONS (3)
  - ACCIDENT [None]
  - HEAD INJURY [None]
  - PHARMACEUTICAL PRODUCT COMPLAINT [None]
